FAERS Safety Report 9089237 (Version 1)
Quarter: 2013Q1

REPORT INFORMATION
  Report Type: Spontaneous
  Country: PL (occurrence: PL)
  Receive Date: 20130218
  Receipt Date: 20130218
  Transmission Date: 20140127
  Serious: Yes (Hospitalization)
  Sender: FDA-Public Use
  Company Number: PL-MYLANLABS-2013S1002952

PATIENT
  Age: 53 Year
  Sex: Male

DRUGS (3)
  1. IBUPROFEN [Suspect]
     Dosage: 200MG
     Route: 065
  2. ISOTRETINOIN [Suspect]
     Indication: BENIGN FAMILIAL PEMPHIGUS
     Dosage: 0.4 MG/KG
     Route: 048
     Dates: start: 2006
  3. PREDNISONE [Concomitant]
     Indication: BENIGN FAMILIAL PEMPHIGUS
     Dosage: 0.4 MG/KG
     Route: 048

REACTIONS (5)
  - Drug eruption [Recovering/Resolving]
  - Benign familial pemphigus [Recovering/Resolving]
  - Hepatic enzyme increased [Recovering/Resolving]
  - Blood cholesterol increased [Not Recovered/Not Resolved]
  - Blood triglycerides increased [Not Recovered/Not Resolved]
